FAERS Safety Report 10486139 (Version 1)
Quarter: 2014Q3

REPORT INFORMATION
  Report Type: Spontaneous
  Country: US (occurrence: None)
  Receive Date: 20140930
  Receipt Date: 20140930
  Transmission Date: 20150326
  Serious: Yes (Hospitalization)
  Sender: FDA-Public Use
  Company Number: None

PATIENT
  Age: 73 Year
  Sex: Male
  Weight: 95.7 kg

DRUGS (2)
  1. METHYLPREDNISOLONE [Suspect]
     Active Substance: METHYLPREDNISOLONE
     Route: 042
     Dates: start: 20140828, end: 20140901
  2. PREDNISONE. [Suspect]
     Active Substance: PREDNISONE
     Dosage: 60 MG AM PO
     Route: 048
     Dates: start: 20140901, end: 20140903

REACTIONS (3)
  - Substance-induced psychotic disorder [None]
  - Delirium [None]
  - Agitation [None]

NARRATIVE: CASE EVENT DATE: 20140902
